APPROVED DRUG PRODUCT: SKLICE
Active Ingredient: IVERMECTIN
Strength: 0.5%
Dosage Form/Route: LOTION;TOPICAL
Application: N202736 | Product #001
Applicant: ARBOR PHARMACEUTICALS LLC
Approved: Feb 7, 2012 | RLD: Yes | RS: Yes | Type: OTC